FAERS Safety Report 19006425 (Version 1)
Quarter: 2021Q1

REPORT INFORMATION
  Report Type: Spontaneous
  Country: PL (occurrence: PL)
  Receive Date: 20210315
  Receipt Date: 20210315
  Transmission Date: 20210420
  Serious: Yes (Other)
  Sender: FDA-Public Use
  Company Number: PL-AMGEN-POLSP2021039033

PATIENT
  Age: 53 Year
  Sex: Female
  Weight: 83 kg

DRUGS (1)
  1. ENBREL [Suspect]
     Active Substance: ETANERCEPT
     Indication: RHEUMATOID ARTHRITIS
     Dosage: 50 MILLIGRAM
     Route: 058
     Dates: start: 20100310, end: 20200516

REACTIONS (5)
  - Vomiting [Recovering/Resolving]
  - Nausea [Recovering/Resolving]
  - Diarrhoea [Recovering/Resolving]
  - Inflammatory bowel disease [Unknown]
  - Enteritis [Recovering/Resolving]

NARRATIVE: CASE EVENT DATE: 20200309
